FAERS Safety Report 12354412 (Version 1)
Quarter: 2016Q2

REPORT INFORMATION
  Report Type: Spontaneous
  Country: TR (occurrence: TR)
  Receive Date: 20160511
  Receipt Date: 20160511
  Transmission Date: 20160815
  Serious: Yes (Death, Other)
  Sender: FDA-Public Use
  Company Number: TR-CELGENEUS-TUR-2016047536

PATIENT

DRUGS (1)
  1. AZACITIDINE INJECTABLE [Suspect]
     Active Substance: AZACITIDINE
     Indication: MYELODYSPLASTIC SYNDROME
     Dosage: 18.75 MILLIGRAM/SQ. METER
     Route: 058

REACTIONS (6)
  - Red blood cell count decreased [Unknown]
  - No therapeutic response [Unknown]
  - Fungal infection [Unknown]
  - Platelet count decreased [Unknown]
  - Febrile neutropenia [Unknown]
  - Death [Fatal]
